FAERS Safety Report 10336746 (Version 2)
Quarter: 2014Q3

REPORT INFORMATION
  Report Type: Spontaneous
  Country: US (occurrence: US)
  Receive Date: 20140723
  Receipt Date: 20140723
  Transmission Date: 20150326
  Serious: Yes (Death, Hospitalization)
  Sender: FDA-Public Use
  Company Number: US-GLAXOSMITHKLINE-A0905577A

PATIENT
  Sex: Female

DRUGS (2)
  1. AVANDAMET [Suspect]
     Active Substance: METFORMIN HYDROCHLORIDE\ROSIGLITAZONE MALEATE
     Indication: DIABETES MELLITUS
     Route: 048
     Dates: start: 20040927, end: 20060624
  2. AVANDIA [Suspect]
     Active Substance: ROSIGLITAZONE MALEATE
     Indication: DIABETES MELLITUS
     Dosage: 4MG PER DAY
     Route: 048
     Dates: start: 20051209, end: 20051219

REACTIONS (11)
  - Coronary artery disease [Unknown]
  - Sudden cardiac death [Fatal]
  - Ischaemic cardiomyopathy [Unknown]
  - Pulmonary oedema [Unknown]
  - Cardiogenic shock [Unknown]
  - Cardiac failure congestive [Fatal]
  - Sinus arrest [Unknown]
  - Pleural effusion [Unknown]
  - Atrial fibrillation [Unknown]
  - Sick sinus syndrome [Unknown]
  - Myocardial infarction [Unknown]
